FAERS Safety Report 20279125 (Version 1)
Quarter: 2022Q1

REPORT INFORMATION
  Report Type: Report from Study
  Country: US (occurrence: US)
  Receive Date: 20220103
  Receipt Date: 20220103
  Transmission Date: 20220423
  Serious: No
  Sender: FDA-Public Use
  Company Number: US-NOVARTISTESTPH-NVSC2021US295335

PATIENT
  Sex: Female

DRUGS (1)
  1. ENTRESTO [Suspect]
     Active Substance: SACUBITRIL\VALSARTAN
     Indication: Cardiac failure chronic
     Dosage: UNK
     Route: 065

REACTIONS (8)
  - Chest discomfort [Unknown]
  - Dyspnoea [Unknown]
  - Blood pressure abnormal [Unknown]
  - Hypoacusis [Unknown]
  - Catheterisation cardiac [Unknown]
  - Prescription drug used without a prescription [Unknown]
  - Fatigue [Unknown]
  - Wrong technique in product usage process [Unknown]
